FAERS Safety Report 10302190 (Version 1)
Quarter: 2014Q3

REPORT INFORMATION
  Report Type: Spontaneous
  Country: CA (occurrence: None)
  Receive Date: 20140710
  Receipt Date: 20140710
  Transmission Date: 20150326
  Serious: Yes (Hospitalization)
  Sender: FDA-Public Use
  Company Number: None

PATIENT
  Age: 67 Year
  Sex: Male
  Weight: 90.4 kg

DRUGS (21)
  1. BISACODYL. [Concomitant]
     Active Substance: BISACODYL
  2. CALCIUM CARBONATE. [Concomitant]
     Active Substance: CALCIUM CARBONATE
  3. OXYCODONE [Concomitant]
     Active Substance: OXYCODONE
  4. NACL INFUSION [Concomitant]
  5. ACETAMINOPHEN /CAFFEINE/CODEINE [Concomitant]
  6. MORPHINE [Concomitant]
     Active Substance: MORPHINE
  7. CEFTRIAXONE. [Concomitant]
     Active Substance: CEFTRIAXONE
  8. FENTANYL. [Concomitant]
     Active Substance: FENTANYL
  9. AMLODIPINE [Concomitant]
     Active Substance: AMLODIPINE BESYLATE
  10. TINZAPARIN [Concomitant]
     Active Substance: TINZAPARIN
  11. ERGOCALCIFEROL. [Concomitant]
     Active Substance: ERGOCALCIFEROL
  12. HYDROCHLOROTHIAZIDE. [Concomitant]
     Active Substance: HYDROCHLOROTHIAZIDE
  13. METFORMIN [Concomitant]
     Active Substance: METFORMIN HYDROCHLORIDE
  14. ROSUVASTATIN [Concomitant]
     Active Substance: ROSUVASTATIN
  15. TAXOTERE [Suspect]
     Active Substance: DOCETAXEL
  16. SENOKOT [Concomitant]
     Active Substance: SENNOSIDES
  17. DALTEPARINE [Concomitant]
  18. ENALAPRIL [Concomitant]
     Active Substance: ENALAPRIL
  19. GLICAZIDE [Concomitant]
     Active Substance: GLICLAZIDE
  20. ONDANSETRON [Concomitant]
     Active Substance: ONDANSETRON
  21. VIT. D [Concomitant]

REACTIONS (2)
  - Fall [None]
  - Hip fracture [None]

NARRATIVE: CASE EVENT DATE: 20140612
